FAERS Safety Report 24754345 (Version 1)
Quarter: 2024Q4

REPORT INFORMATION
  Report Type: Spontaneous
  Country: US (occurrence: US)
  Receive Date: 20241219
  Receipt Date: 20241219
  Transmission Date: 20250114
  Serious: Yes (Death, Hospitalization)
  Sender: SERVIER
  Company Number: None

PATIENT
  Age: 3 Year
  Sex: Female
  Weight: 13.8 kg

DRUGS (6)
  1. ASPARLAS [Suspect]
     Active Substance: CALASPARGASE PEGOL-MKNL
     Indication: B-cell type acute leukaemia
     Dosage: 1477.5 IU, ONE DOSE
     Route: 042
     Dates: start: 20240405, end: 20240405
  2. VINCRISTINE SULFATE [Suspect]
     Active Substance: VINCRISTINE SULFATE
     Indication: B-cell type acute leukaemia
     Dosage: 1.78 MG, TOTAL DOSE
     Route: 042
     Dates: start: 20240322, end: 20240412
  3. MERCAPTOPURINE [Suspect]
     Active Substance: MERCAPTOPURINE
     Indication: B-cell type acute leukaemia
     Dosage: 504 MG, TOTAL DOSE
     Route: 048
     Dates: start: 20240322, end: 20240406
  4. CYCLOPHOSPHAMIDE [Suspect]
     Active Substance: CYCLOPHOSPHAMIDE
     Indication: B-cell type acute leukaemia
     Dosage: 600 MG, ONE DOSE
     Route: 042
     Dates: start: 20240322, end: 20240322
  5. METHOTREXATE SODIUM [Suspect]
     Active Substance: METHOTREXATE SODIUM
     Indication: B-cell type acute leukaemia
     Dosage: 40 MG, TOTAL DOSE
     Route: 065
     Dates: start: 20240322, end: 20240412
  6. CYTARABINE [Suspect]
     Active Substance: CYTARABINE
     Indication: B-cell type acute leukaemia
     Dosage: 352 MG, TOTAL DOSE
     Route: 065
     Dates: start: 20240322, end: 20240401

REACTIONS (11)
  - Sepsis [Fatal]
  - Clostridium difficile colitis [Unknown]
  - Febrile neutropenia [Recovered/Resolved]
  - Febrile neutropenia [Recovered/Resolved]
  - Febrile neutropenia [Unknown]
  - Coronavirus infection [Unknown]
  - Rhinovirus infection [Unknown]
  - Enterovirus infection [Unknown]
  - Respiratory failure [Not Recovered/Not Resolved]
  - Norovirus infection [Unknown]
  - Escherichia urinary tract infection [Unknown]

NARRATIVE: CASE EVENT DATE: 20240101
